FAERS Safety Report 19192679 (Version 1)
Quarter: 2021Q2

REPORT INFORMATION
  Report Type: Spontaneous
  Country: US (occurrence: US)
  Receive Date: 20210428
  Receipt Date: 20210428
  Transmission Date: 20210717
  Serious: Yes (Other)
  Sender: FDA-Public Use
  Company Number: US-GREER LABORATORIES, INC.-2109948

PATIENT
  Age: 24 Year
  Sex: Male

DRUGS (1)
  1. MOLDS, RUSTS AND SMUTS, CANDIDA ALBICANS [Suspect]
     Active Substance: CANDIDA ALBICANS
     Indication: SKIN PAPILLOMA
     Route: 026
     Dates: start: 20210415, end: 20210415

REACTIONS (2)
  - Anaphylactic reaction [Recovered/Resolved]
  - Off label use [Recovered/Resolved]

NARRATIVE: CASE EVENT DATE: 20210415
